FAERS Safety Report 4892118-4 (Version None)
Quarter: 2006Q1

REPORT INFORMATION
  Report Type: 
  Country: None (occurrence: None)
  Receive Date: 20060123
  Receipt Date: 20060110
  Transmission Date: 20060701
  Serious: Yes (Hospitalization)
  Sender: FDA-Public Use
  Company Number: 2006VX000006

PATIENT
  Age: 85 Year
  Sex: Female

DRUGS (5)
  1. MESTINON [Suspect]
     Dosage: 60 MG; QD; PO
     Route: 048
     Dates: start: 20050701
  2. ROHYPNOL (FLUNITRAZEPAM) [Suspect]
  3. XANAX [Suspect]
  4. ROHYPNOL [Concomitant]
  5. XANAX [Concomitant]

REACTIONS (2)
  - FALL [None]
  - FEMORAL NECK FRACTURE [None]
